FAERS Safety Report 5817928-8 (Version None)
Quarter: 2008Q3

REPORT INFORMATION
  Report Type: 
  Country: None (occurrence: None)
  Receive Date: 20080722
  Receipt Date: 20070718
  Transmission Date: 20090109
  Serious: Yes (Other)
  Sender: FDA-Public Use
  Company Number: US-BAYER-US-2007-025528

PATIENT
  Age: 53 Year
  Sex: Female

DRUGS (2)
  1. MAGNEVIST [Suspect]
     Indication: NUCLEAR MAGNETIC RESONANCE IMAGING BRAIN
     Dosage: UNIT DOSE: 10 ML
     Route: 042
     Dates: start: 20070525, end: 20070525
  2. ATIVAN [Concomitant]
     Indication: CLAUSTROPHOBIA
     Dates: start: 20070525, end: 20070525

REACTIONS (6)
  - CHEST DISCOMFORT [None]
  - COUGH [None]
  - NAUSEA [None]
  - PRURITUS [None]
  - RASH [None]
  - URTICARIA [None]
